FAERS Safety Report 6132503-6 (Version None)
Quarter: 2009Q1

REPORT INFORMATION
  Report Type: 
  Country: None (occurrence: None)
  Receive Date: 20090324
  Receipt Date: 20090317
  Transmission Date: 20090719
  Serious: Yes (Hospitalization)
  Sender: FDA-Public Use
  Company Number: ADR0922009

PATIENT
  Age: 77 Year
  Sex: Female

DRUGS (9)
  1. SIMVASTATIN [Suspect]
     Indication: HYPERTENSION
     Dosage: 40 MG
  2. CIPROFLOXACIN [Suspect]
     Indication: URINARY TRACT INFECTION
  3. ISOSORBIDE MONONITRATE [Concomitant]
  4. PINDOLOL [Concomitant]
  5. CIMETIDINE HCL [Concomitant]
  6. NICORANDIL [Concomitant]
  7. ASPIRIN [Concomitant]
  8. FUROSEMIDE [Concomitant]
  9. LEVOTHYROXINE SODIUM [Concomitant]

REACTIONS (2)
  - DRUG INTERACTION [None]
  - RHABDOMYOLYSIS [None]
